FAERS Safety Report 7503272-X (Version None)
Quarter: 2011Q2

REPORT INFORMATION
  Report Type: 
  Country: None (occurrence: None)
  Receive Date: 20110518
  Receipt Date: 20110502
  Transmission Date: 20111010
  Serious: Yes (Other)
  Sender: FDA-Public Use
  Company Number: US-DEXPHARM-20110505

PATIENT
  Sex: Male
  Weight: 108 kg

DRUGS (3)
  1. CONTRAST MEDIA [Suspect]
     Indication: COMPUTED TOMOGRAPHIC COLONOGRAPHY
  2. POLYETHYLENE GLYCOL [Suspect]
     Indication: CONSTIPATION
     Dosage: 17 G ONCE A DAY, ORAL
     Route: 048
     Dates: start: 20110425, end: 20110426
  3. OMEPRAZOLE [Suspect]
     Indication: DYSPEPSIA
     Dosage: 20 MG ONCE A DAY, ORAL
     Route: 048
     Dates: start: 20110424, end: 20110426

REACTIONS (4)
  - BACK PAIN [None]
  - HEPATOMEGALY [None]
  - HEPATITIS [None]
  - CHROMATURIA [None]
